FAERS Safety Report 8619617-3 (Version None)
Quarter: 2012Q3

REPORT INFORMATION
  Report Type: 
  Country: None (occurrence: None)
  Receive Date: 20120824
  Receipt Date: 20120822
  Transmission Date: 20120928
  Serious: Yes (Death, Hospitalization, Other)
  Sender: FDA-Public Use
  Company Number: ZA-BAYER-2012-086528

PATIENT
  Age: 42 Year
  Sex: Female

DRUGS (2)
  1. CIPROFLOXACIN [Suspect]
     Indication: PERITONITIS BACTERIAL
     Dosage: 400 MG, BID
     Route: 042
  2. CIPROFLOXACIN [Suspect]
     Indication: PNEUMONIA BORDETELLA

REACTIONS (4)
  - PNEUMONIA BORDETELLA [None]
  - PERITONITIS BACTERIAL [None]
  - BORDETELLA INFECTION [None]
  - RESPIRATORY DISTRESS [None]
